FAERS Safety Report 5708768-9 (Version None)
Quarter: 2008Q2

REPORT INFORMATION
  Report Type: 
  Country: None (occurrence: None)
  Receive Date: 20080417
  Receipt Date: 20080403
  Transmission Date: 20081010
  Serious: Yes (Other)
  Sender: FDA-Public Use
  Company Number: JP-GENENTECH-259059

PATIENT
  Sex: Male
  Weight: 52.971 kg

DRUGS (3)
  1. BEVACIZUMAB [Suspect]
     Indication: NON-SMALL CELL LUNG CANCER METASTATIC
     Dosage: 795 MG, Q3W
     Route: 042
     Dates: start: 20080327
  2. CARBOPLATIN [Suspect]
     Indication: NON-SMALL CELL LUNG CANCER METASTATIC
     Dosage: 312 MG, Q3W
     Route: 042
     Dates: start: 20080327
  3. PACLITAXEL [Suspect]
     Indication: NON-SMALL CELL LUNG CANCER METASTATIC
     Dosage: 374 MG, Q3W
     Route: 042
     Dates: start: 20080327

REACTIONS (1)
  - HYPOXIA [None]
